FAERS Safety Report 8216437-9 (Version None)
Quarter: 2012Q1

REPORT INFORMATION
  Report Type: 
  Country: None (occurrence: None)
  Receive Date: 20120316
  Receipt Date: 20120314
  Transmission Date: 20120608
  Serious: Yes (Death, Other)
  Sender: FDA-Public Use
  Company Number: PHEH2012US005906

PATIENT
  Sex: Female

DRUGS (1)
  1. NEORAL [Suspect]
     Indication: RENAL TRANSPLANT
     Dosage: 25 MG, BID
     Route: 048

REACTIONS (4)
  - DEATH [None]
  - MULTIPLE SCLEROSIS [None]
  - URINARY TRACT INFECTION [None]
  - SEPSIS [None]
